FAERS Safety Report 12642171 (Version 1)
Quarter: 2016Q3

REPORT INFORMATION
  Report Type: Report from Study
  Country: PR (occurrence: PR)
  Receive Date: 20160810
  Receipt Date: 20160810
  Transmission Date: 20161109
  Serious: Yes (Hospitalization, Other)
  Sender: FDA-Public Use
  Company Number: PR-ABBVIE-16K-131-1672954-00

PATIENT
  Age: 31 Year
  Sex: Male
  Weight: 43.13 kg

DRUGS (3)
  1. HUMIRA [Suspect]
     Active Substance: ADALIMUMAB
     Indication: CROHN^S DISEASE
     Route: 058
     Dates: start: 2014, end: 201602
  2. HUMIRA [Suspect]
     Active Substance: ADALIMUMAB
     Route: 058
     Dates: start: 201604
  3. IMURAN [Concomitant]
     Active Substance: AZATHIOPRINE
     Indication: CROHN^S DISEASE
     Route: 048

REACTIONS (3)
  - Colonic fistula [Recovered/Resolved]
  - Procedural pain [Recovered/Resolved]
  - Osteomyelitis [Recovering/Resolving]

NARRATIVE: CASE EVENT DATE: 201602
